FAERS Safety Report 9542493 (Version 1)
Quarter: 2013Q3

REPORT INFORMATION
  Report Type: Spontaneous
  Country: AU (occurrence: AU)
  Receive Date: 20130923
  Receipt Date: 20130923
  Transmission Date: 20140515
  Serious: Yes (Other)
  Sender: FDA-Public Use
  Company Number: PHHY2013AU104812

PATIENT
  Sex: Female

DRUGS (5)
  1. ZOLEDRONIC ACID [Suspect]
     Dosage: UNK UKN, UNK
  2. TOFRANIL [Suspect]
     Dosage: UNK UKN, UNK
  3. DI-GESIC [Suspect]
     Dosage: UNK UKN, UNK
  4. FERROGRAD C [Suspect]
     Dosage: UNK UKN, UNK
  5. OSTELIN [Suspect]
     Dosage: UNK UKN, UNK

REACTIONS (7)
  - Balance disorder [Unknown]
  - Memory impairment [Unknown]
  - Weight bearing difficulty [Unknown]
  - Oral pain [Unknown]
  - Confusional state [Unknown]
  - Decreased appetite [Unknown]
  - Somnolence [Unknown]
